FAERS Safety Report 6155170-4 (Version None)
Quarter: 2009Q2

REPORT INFORMATION
  Report Type: 
  Country: None (occurrence: None)
  Receive Date: 20090415
  Receipt Date: 20090406
  Transmission Date: 20091009
  Serious: Yes (Other)
  Sender: FDA-Public Use
  Company Number: US-JNJFOC-20061006161

PATIENT
  Sex: Male

DRUGS (8)
  1. RISPERDAL [Suspect]
     Indication: DEPRESSION
  2. RISPERDAL [Suspect]
     Indication: ANXIETY
  3. RISPERDAL [Suspect]
     Indication: SCHIZOAFFECTIVE DISORDER
  4. SEROQUEL [Suspect]
     Indication: DEPRESSION
  5. PAXIL [Concomitant]
  6. RITALIN [Concomitant]
  7. WELLBUTRIN [Concomitant]
  8. REMERON [Concomitant]

REACTIONS (8)
  - DIZZINESS [None]
  - EXTRAPYRAMIDAL DISORDER [None]
  - MUSCLE TWITCHING [None]
  - PARAESTHESIA [None]
  - PARKINSONISM [None]
  - SEDATION [None]
  - TYPE 2 DIABETES MELLITUS [None]
  - WEIGHT INCREASED [None]
